FAERS Safety Report 7454325-6 (Version None)
Quarter: 2011Q2

REPORT INFORMATION
  Report Type: 
  Country: None (occurrence: None)
  Receive Date: 20110503
  Receipt Date: 20110421
  Transmission Date: 20111010
  Serious: No
  Sender: FDA-Public Use
  Company Number: US-JNJFOC-20110305303

PATIENT
  Sex: Female
  Weight: 107.5 kg

DRUGS (11)
  1. FENTANYL-100 [Suspect]
     Route: 062
  2. LEXAPRO [Concomitant]
     Indication: DEPRESSION
  3. ASPIRIN [Concomitant]
     Route: 048
  4. REBIF [Concomitant]
     Indication: MULTIPLE SCLEROSIS
  5. FENTANYL-100 [Suspect]
     Indication: MULTIPLE SCLEROSIS
     Route: 062
  6. INTERFERON BETA-1A [Concomitant]
     Indication: MULTIPLE SCLEROSIS
  7. ENABLEX [Concomitant]
     Indication: URINARY INCONTINENCE
  8. CYCLOBENZAPRINE HYDROCHLORIDE [Concomitant]
     Indication: MULTIPLE SCLEROSIS
     Route: 048
  9. ZOLOFT [Concomitant]
     Indication: DEPRESSION
  10. OXYBUTYNIN [Concomitant]
     Indication: URINARY INCONTINENCE
  11. CARBATROL [Concomitant]
     Indication: MULTIPLE SCLEROSIS
     Route: 048

REACTIONS (3)
  - WRONG TECHNIQUE IN DRUG USAGE PROCESS [None]
  - PRODUCT QUALITY ISSUE [None]
  - TREATMENT NONCOMPLIANCE [None]
